FAERS Safety Report 19656730 (Version 3)
Quarter: 2021Q3

REPORT INFORMATION
  Report Type: Report from Study
  Country: US (occurrence: US)
  Receive Date: 20210804
  Receipt Date: 20210917
  Transmission Date: 20211014
  Serious: Yes (Other)
  Sender: FDA-Public Use
  Company Number: US-EMD SERONO-9255705

PATIENT
  Age: 66 Year
  Sex: Male

DRUGS (2)
  1. REBIF [Suspect]
     Active Substance: INTERFERON BETA-1A
     Indication: MULTIPLE SCLEROSIS
     Dosage: PREVIOUSLY REBIJECT II ?REBIF PREFILLED SYRINGE
     Route: 058
     Dates: start: 20060108
  2. REBIF [Suspect]
     Active Substance: INTERFERON BETA-1A
     Dosage: PREVIOUSLY REBIJECT II ?REBIF PREFILLED SYRINGE
     Route: 058
     Dates: start: 2021

REACTIONS (4)
  - Intervertebral disc degeneration [Unknown]
  - Treatment noncompliance [Recovered/Resolved]
  - Mobility decreased [Unknown]
  - Spinal stenosis [Unknown]

NARRATIVE: CASE EVENT DATE: 2021
